FAERS Safety Report 8047038-3 (Version None)
Quarter: 2012Q1

REPORT INFORMATION
  Report Type: 
  Country: None (occurrence: None)
  Receive Date: 20120116
  Receipt Date: 20111010
  Transmission Date: 20120608
  Serious: No
  Sender: FDA-Public Use
  Company Number: US-MYLANLABS-2011S1021283

PATIENT
  Sex: Male

DRUGS (1)
  1. POLYETHYLENE GLYCOL 3350 AND ELECTROLYTES [Suspect]
     Route: 048
     Dates: start: 20111010, end: 20111010

REACTIONS (1)
  - LACERATION [None]
